FAERS Safety Report 4991723-4 (Version None)
Quarter: 2006Q2

REPORT INFORMATION
  Report Type: 
  Country: None (occurrence: None)
  Receive Date: 20060504
  Receipt Date: 20060424
  Transmission Date: 20061013
  Serious: Yes (Hospitalization)
  Sender: FDA-Public Use
  Company Number: GB-GLAXOSMITHKLINE-B0422168A

PATIENT
  Age: 60 Year
  Sex: Female

DRUGS (7)
  1. WARFARIN SODIUM [Suspect]
     Indication: PULMONARY EMBOLISM
     Route: 065
  2. TRIMETHOPRIM [Suspect]
     Indication: URINARY TRACT INFECTION
     Route: 065
  3. CEPHALEXIN [Suspect]
     Indication: URINARY TRACT INFECTION
     Route: 065
  4. METRONIDAZOLE [Suspect]
     Indication: URINARY TRACT INFECTION
     Route: 065
  5. NIFEDIPINE [Concomitant]
     Route: 065
  6. ACEBUTOLOL [Concomitant]
     Route: 065
  7. INDAPAMIDE [Concomitant]
     Route: 065

REACTIONS (9)
  - ABDOMINAL PAIN [None]
  - DEEP VEIN THROMBOSIS [None]
  - DRUG INTERACTION [None]
  - HYPOVOLAEMIC SHOCK [None]
  - MUSCLE HAEMORRHAGE [None]
  - PYREXIA [None]
  - RETROPERITONEAL HAEMATOMA [None]
  - URETERIC OBSTRUCTION [None]
  - WHITE BLOOD CELL COUNT INCREASED [None]
